FAERS Safety Report 11904222 (Version 1)
Quarter: 2016Q1

REPORT INFORMATION
  Report Type: Spontaneous
  Country: US (occurrence: US)
  Receive Date: 20160111
  Receipt Date: 20160111
  Transmission Date: 20160526
  Serious: No
  Sender: FDA-Public Use
  Company Number: US-ASTRAZENECA-2016SE01744

PATIENT
  Age: 76 Year
  Sex: Female
  Weight: 86 kg

DRUGS (1)
  1. NEXIUM 24HR [Suspect]
     Active Substance: ESOMEPRAZOLE MAGNESIUM
     Indication: GASTROOESOPHAGEAL REFLUX DISEASE
     Route: 048
     Dates: start: 20151212

REACTIONS (7)
  - Anxiety [Unknown]
  - Drug intolerance [Unknown]
  - Poor quality sleep [Unknown]
  - Fatigue [Unknown]
  - Disturbance in attention [Unknown]
  - Frequent bowel movements [Unknown]
  - Head discomfort [Unknown]

NARRATIVE: CASE EVENT DATE: 20151212
